FAERS Safety Report 11196728 (Version 1)
Quarter: 2015Q2

REPORT INFORMATION
  Report Type: Spontaneous
  Country: US (occurrence: US)
  Receive Date: 20150617
  Receipt Date: 20150617
  Transmission Date: 20150821
  Serious: Yes (Hospitalization, Disabling)
  Sender: FDA-Public Use
  Company Number: US-BANPHARM-20153967

PATIENT
  Age: 33 Year
  Sex: Male

DRUGS (6)
  1. METHOTREXATE [Suspect]
     Active Substance: METHOTREXATE
     Dosage: 17.5 MG, PER WEEK,
  2. SULFASALAZINE. [Concomitant]
     Active Substance: SULFASALAZINE
  3. HYDROXYCHLOROQUINE [Concomitant]
     Active Substance: HYDROXYCHLOROQUINE
  4. PREDNISONE. [Suspect]
     Active Substance: PREDNISONE
     Dosage: 2 MG, QD,
  5. NAPROXEN UNKNOWN PRODUCT [Suspect]
     Active Substance: NAPROXEN
     Indication: RHEUMATOID ARTHRITIS
     Dosage: PRN,
  6. FOLIC ACID. [Concomitant]
     Active Substance: FOLIC ACID

REACTIONS (3)
  - Diverticular perforation [Recovered/Resolved]
  - Diverticulitis [Recovered/Resolved]
  - Colectomy [Recovered/Resolved]
